FAERS Safety Report 22380715 (Version 1)
Quarter: 2023Q2

REPORT INFORMATION
  Report Type: Spontaneous
  Country: NL (occurrence: NL)
  Receive Date: 20230529
  Receipt Date: 20230529
  Transmission Date: 20230722
  Serious: Yes (Hospitalization)
  Sender: FDA-Public Use
  Company Number: None

PATIENT
  Age: 76 Year
  Sex: Female

DRUGS (9)
  1. XARELTO [Suspect]
     Active Substance: RIVAROXABAN
     Indication: Atrial flutter
     Dosage: 20 MG, QD
     Route: 048
     Dates: start: 20210219
  2. XARELTO [Suspect]
     Active Substance: RIVAROXABAN
     Indication: Transcatheter aortic valve implantation
     Route: 048
  3. FERROUS FUMARATE [Concomitant]
     Active Substance: FERROUS FUMARATE
     Dosage: 200 MG
  4. ESTRIOL-OVULUM [Concomitant]
     Dosage: 0.5 MG
  5. TIOTROPIUM [Concomitant]
     Active Substance: TIOTROPIUM
     Dosage: 2.5 UG
  6. LISINOPRIL [Concomitant]
     Active Substance: LISINOPRIL
     Dosage: 10 MG
  7. METOPROLOL [Concomitant]
     Active Substance: METOPROLOL
     Dosage: 100 MG
  8. DOXAZOSIN MESYLATE [Concomitant]
     Active Substance: DOXAZOSIN MESYLATE
     Dosage: 4 MG
  9. BECLOMETHASONE DIPROPIONATE [Concomitant]
     Active Substance: BECLOMETHASONE DIPROPIONATE
     Dosage: 200 UG

REACTIONS (5)
  - Arterial haemorrhage [Recovering/Resolving]
  - Syncope [Recovering/Resolving]
  - Traumatic haematoma [Recovering/Resolving]
  - Haemorrhage [Recovering/Resolving]
  - Hypovolaemic shock [Recovering/Resolving]

NARRATIVE: CASE EVENT DATE: 20230403
